FAERS Safety Report 9072483 (Version 1)
Quarter: 2013Q1

REPORT INFORMATION
  Report Type: Spontaneous
  Country: US (occurrence: US)
  Receive Date: 20130207
  Receipt Date: 20130207
  Transmission Date: 20140127
  Serious: No
  Sender: FDA-Public Use
  Company Number: US-B.I. PHARMACEUTICALS,INC./RIDGEFIELD-2013-BI-03447BP

PATIENT
  Age: 78 Year
  Sex: Female
  Weight: 61 kg

DRUGS (8)
  1. SPIRIVA [Suspect]
     Indication: CHRONIC OBSTRUCTIVE PULMONARY DISEASE
     Dosage: 18 MCG
     Route: 055
     Dates: start: 20130205
  2. SYNTHROID [Concomitant]
     Indication: HYPOTHYROIDISM
     Dosage: 25 MCG
     Route: 048
  3. AMBIEN [Concomitant]
     Dosage: 5 MG
     Route: 048
  4. LISINOPRIL [Concomitant]
     Indication: BLOOD PRESSURE INCREASED
     Dosage: 20 MG
     Route: 048
  5. XANAX [Concomitant]
     Indication: ANXIETY
     Dosage: 0.25 MG
     Route: 048
  6. PLAVIX [Concomitant]
     Dosage: 75 MG
     Route: 048
  7. ASPIRIN [Concomitant]
     Dosage: 81 MG
     Route: 048
  8. LIPITOR [Concomitant]
     Indication: BLOOD CHOLESTEROL INCREASED
     Dosage: 20 MG
     Route: 048

REACTIONS (1)
  - Heart rate increased [Recovered/Resolved]
